FAERS Safety Report 6912583-8 (Version None)
Quarter: 2010Q3

REPORT INFORMATION
  Report Type: 
  Country: None (occurrence: None)
  Receive Date: 20100806
  Receipt Date: 20080804
  Transmission Date: 20110219
  Serious: No
  Sender: FDA-Public Use
  Company Number: US-PFIZER INC-2008065495

PATIENT
  Sex: Male

DRUGS (3)
  1. VFEND [Suspect]
     Indication: NEUTROPENIA
  2. CEFTAZIDIME [Suspect]
  3. VANCOMYCIN [Suspect]

REACTIONS (3)
  - ERYTHEMA [None]
  - RASH [None]
  - RASH PAPULAR [None]
